FAERS Safety Report 16425750 (Version 1)
Quarter: 2019Q2

REPORT INFORMATION
  Report Type: Spontaneous
  Country: US (occurrence: US)
  Receive Date: 20190506
  Receipt Date: 20190506
  Transmission Date: 20190711
  Serious: No
  Sender: FDA-Public Use
  Company Number: None

PATIENT
  Age: 18 Year
  Sex: Female

DRUGS (1)
  1. NUCALA [Suspect]
     Active Substance: MEPOLIZUMAB
     Indication: ASTHMA
     Route: 058
     Dates: start: 20190305, end: 20190318

REACTIONS (6)
  - Hypersomnia [None]
  - Tremor [None]
  - Irregular breathing [None]
  - Pain [None]
  - Muscle twitching [None]
  - Fatigue [None]

NARRATIVE: CASE EVENT DATE: 20190310
